FAERS Safety Report 16029367 (Version 1)
Quarter: 2019Q1

REPORT INFORMATION
  Report Type: Spontaneous
  Country: US (occurrence: US)
  Receive Date: 20190204
  Receipt Date: 20190204
  Transmission Date: 20190418
  Serious: Yes (Death)
  Sender: FDA-Public Use
  Company Number: None

PATIENT
  Age: 53 Year
  Sex: Female

DRUGS (3)
  1. GRANISETRON [Suspect]
     Active Substance: GRANISETRON
     Indication: OVARIAN CANCER
     Route: 042
     Dates: start: 201809, end: 201901
  2. GEMCITABINE [Suspect]
     Active Substance: GEMCITABINE\GEMCITABINE HYDROCHLORIDE
     Indication: OVARIAN CANCER
     Dosage: ?          OTHER DOSE:1370MG TOTAL  DOSE;?
     Route: 042
     Dates: start: 201809, end: 201901
  3. GEMCITABINE 200MG SDV [Suspect]
     Active Substance: GEMCITABINE HYDROCHLORIDE
     Indication: OVARIAN CANCER
     Dosage: ?          OTHER DOSE:1370MG TOTAL DOSE;?
     Route: 042
     Dates: start: 201809, end: 201901

REACTIONS (1)
  - Death [None]

NARRATIVE: CASE EVENT DATE: 20190128
